FAERS Safety Report 11389952 (Version 1)
Quarter: 2015Q3

REPORT INFORMATION
  Report Type: Spontaneous
  Country: KR (occurrence: KR)
  Receive Date: 20150818
  Receipt Date: 20150818
  Transmission Date: 20151125
  Serious: Yes (Hospitalization, Other)
  Sender: FDA-Public Use
  Company Number: PHHY2015KR096217

PATIENT
  Age: 56 Year
  Sex: Female

DRUGS (6)
  1. LORAZEPAM. [Suspect]
     Active Substance: LORAZEPAM
     Indication: MAJOR DEPRESSION
     Dosage: 2 MG, QD
     Route: 065
  2. CLONAZEPAM. [Suspect]
     Active Substance: CLONAZEPAM
     Indication: MAJOR DEPRESSION
     Dosage: 1.5 MG, QD
     Route: 065
     Dates: start: 201405
  3. FLURAZEPAM [Suspect]
     Active Substance: FLURAZEPAM\FLURAZEPAM HYDROCHLORIDE
     Indication: MAJOR DEPRESSION
     Dosage: 15-30 MG QD
     Route: 065
     Dates: start: 200208, end: 201304
  4. TRAZODONE [Suspect]
     Active Substance: TRAZODONE HYDROCHLORIDE
     Indication: MAJOR DEPRESSION
     Dosage: 25 MG, QD
     Route: 065
  5. AMITRIPTYLINE [Suspect]
     Active Substance: AMITRIPTYLINE
     Indication: MAJOR DEPRESSION
     Dosage: 10 MG, QD
     Route: 065
  6. ESCITALOPRAM [Suspect]
     Active Substance: ESCITALOPRAM OXALATE
     Indication: MAJOR DEPRESSION
     Dosage: 5 MG, QD
     Route: 065

REACTIONS (5)
  - Dyskinesia [Recovering/Resolving]
  - Excessive eye blinking [Unknown]
  - Dystonia [Recovering/Resolving]
  - Torticollis [Recovering/Resolving]
  - Tardive dyskinesia [Recovering/Resolving]
